FAERS Safety Report 10489469 (Version 2)
Quarter: 2016Q2

REPORT INFORMATION
  Report Type: Spontaneous
  Country: US (occurrence: US)
  Receive Date: 20140815
  Receipt Date: 20160415
  Transmission Date: 20160815
  Serious: Yes (Other)
  Sender: FDA-Public Use
  Company Number: ADR-2014-01041

PATIENT
  Age: 47 Year
  Sex: Male

DRUGS (2)
  1. LIORESAL [Suspect]
     Active Substance: BACLOFEN
     Dosage: 422.2 MCG/DAY
     Route: 037
     Dates: start: 20140217
  2. COMPOUNDED BACLOFEN [Suspect]
     Active Substance: BACLOFEN
     Route: 037

REACTIONS (3)
  - Hypotonia [Recovered/Resolved]
  - Muscle spasms [Recovered/Resolved]
  - Overdose [Recovered/Resolved]
